FAERS Safety Report 26216472 (Version 1)
Quarter: 2025Q4

REPORT INFORMATION
  Report Type: Spontaneous
  Country: US (occurrence: US)
  Receive Date: 20251231
  Receipt Date: 20251231
  Transmission Date: 20260117
  Serious: Yes (Life-Threatening, Hospitalization)
  Sender: DR REDDYS
  Company Number: None

PATIENT
  Age: 76 Year
  Sex: Female

DRUGS (1)
  1. VENLAFAXINE [Suspect]
     Active Substance: VENLAFAXINE HYDROCHLORIDE
     Indication: Depression
     Dosage: LONG-TERM
     Route: 048

REACTIONS (3)
  - Antidepressant discontinuation syndrome [Recovering/Resolving]
  - Metabolic encephalopathy [Recovered/Resolved]
  - Hypertensive encephalopathy [Recovered/Resolved]
